FAERS Safety Report 10554257 (Version 1)
Quarter: 2014Q4

REPORT INFORMATION
  Report Type: Spontaneous
  Country: US (occurrence: US)
  Receive Date: 20141030
  Receipt Date: 20141030
  Transmission Date: 20150529
  Serious: No
  Sender: FDA-Public Use
  Company Number: US-PFIZER INC-2014294812

PATIENT

DRUGS (1)
  1. LEVOXYL [Suspect]
     Active Substance: LEVOTHYROXINE SODIUM
     Dosage: UNK

REACTIONS (6)
  - Eye infection [Unknown]
  - Dysphonia [Unknown]
  - Hypersensitivity [Unknown]
  - Insomnia [Unknown]
  - Rash [Unknown]
  - Ear infection [Unknown]
